FAERS Safety Report 20382972 (Version 11)
Quarter: 2022Q2

REPORT INFORMATION
  Report Type: Report from Study
  Country: CL (occurrence: None)
  Receive Date: 20220127
  Receipt Date: 20220524
  Transmission Date: 20220720
  Serious: Yes (Hospitalization)
  Sender: FDA-Public Use
  Company Number: CL-Eisai Medical Research-EC-2022-107396

PATIENT
  Age: 74 Year
  Sex: Male
  Weight: 57 kg

DRUGS (18)
  1. LENVATINIB [Suspect]
     Active Substance: LENVATINIB
     Indication: Adenocarcinoma gastric
     Route: 048
     Dates: start: 20211125, end: 20220117
  2. LENVATINIB [Suspect]
     Active Substance: LENVATINIB
     Indication: Oesophageal adenocarcinoma
     Route: 048
     Dates: start: 20220223, end: 20220321
  3. LENVATINIB [Suspect]
     Active Substance: LENVATINIB
     Route: 048
     Dates: start: 20220331
  4. PEMBROLIZUMAB [Suspect]
     Active Substance: PEMBROLIZUMAB
     Indication: Adenocarcinoma gastric
     Route: 041
     Dates: start: 20211125, end: 20211125
  5. PEMBROLIZUMAB [Suspect]
     Active Substance: PEMBROLIZUMAB
     Indication: Oesophageal adenocarcinoma
     Route: 041
     Dates: start: 20220106, end: 20220106
  6. PEMBROLIZUMAB [Suspect]
     Active Substance: PEMBROLIZUMAB
     Route: 041
     Dates: start: 20220322
  7. OXALIPLATIN [Suspect]
     Active Substance: OXALIPLATIN
     Indication: Adenocarcinoma gastric
     Dosage: UNKNOWN DOSE
     Route: 041
     Dates: start: 20211125, end: 20211222
  8. OXALIPLATIN [Suspect]
     Active Substance: OXALIPLATIN
     Indication: Oesophageal adenocarcinoma
     Dosage: UNKNOWN DOSE
     Route: 041
     Dates: start: 20220106, end: 20220106
  9. OXALIPLATIN [Suspect]
     Active Substance: OXALIPLATIN
     Dosage: UNKNOWN DOSE
     Route: 041
     Dates: start: 20220128, end: 20220222
  10. LEUCOVORIN [Suspect]
     Active Substance: LEUCOVORIN
     Indication: Adenocarcinoma gastric
     Dosage: UNKNOWN DOSE
     Route: 041
     Dates: start: 20211125, end: 20211222
  11. LEUCOVORIN [Suspect]
     Active Substance: LEUCOVORIN
     Indication: Oesophageal adenocarcinoma
     Dosage: UNKNOWN DOSE
     Route: 041
     Dates: start: 20220106, end: 20220106
  12. LEUCOVORIN [Suspect]
     Active Substance: LEUCOVORIN
     Dosage: UNKNOWN DOSE
     Route: 041
     Dates: start: 20220128, end: 20220222
  13. FLUOROURACIL [Suspect]
     Active Substance: FLUOROURACIL
     Indication: Adenocarcinoma gastric
     Dosage: UNK DOSE; BOLUS
     Route: 041
     Dates: start: 20211125, end: 20211222
  14. FLUOROURACIL [Suspect]
     Active Substance: FLUOROURACIL
     Indication: Oesophageal adenocarcinoma
     Dosage: UNK DOSE
     Route: 040
     Dates: start: 20211125, end: 20211224
  15. FLUOROURACIL [Suspect]
     Active Substance: FLUOROURACIL
     Dosage: UNK DOSE; BOLUS
     Route: 041
     Dates: start: 20220106, end: 20220108
  16. FLUOROURACIL [Suspect]
     Active Substance: FLUOROURACIL
     Dosage: UNK DOSE
     Route: 040
     Dates: start: 20220106, end: 20220108
  17. FLUOROURACIL [Suspect]
     Active Substance: FLUOROURACIL
     Dosage: UNK DOSE; BOLUS
     Route: 040
     Dates: start: 20220128, end: 20220222
  18. FLUOROURACIL [Suspect]
     Active Substance: FLUOROURACIL
     Dosage: UNK DOSE
     Route: 041
     Dates: start: 20220128, end: 20220224

REACTIONS (1)
  - Gastrointestinal haemorrhage [Recovered/Resolved]

NARRATIVE: CASE EVENT DATE: 20220112
